FAERS Safety Report 16249221 (Version 2)
Quarter: 2019Q2

REPORT INFORMATION
  Report Type: Spontaneous
  Country: FR (occurrence: FR)
  Receive Date: 20190429
  Receipt Date: 20190603
  Transmission Date: 20190711
  Serious: Yes (Other)
  Sender: FDA-Public Use
  Company Number: FR-ACCORD-124496

PATIENT
  Age: 11 Year
  Sex: Male
  Weight: 40.5 kg

DRUGS (3)
  1. ETOPOSIDE. [Suspect]
     Active Substance: ETOPOSIDE
     Indication: OSTEOSARCOMA
     Dosage: 3 SINGLE ADMINISTRATION
     Route: 041
     Dates: start: 20171002, end: 20171005
  2. METHOTREXATE. [Suspect]
     Active Substance: METHOTREXATE
     Indication: OSTEOSARCOMA
     Dosage: 4 SINGLE ADMINISTRATION
     Route: 041
     Dates: start: 20170911, end: 20171023
  3. IFOSFAMIDE EG [Suspect]
     Active Substance: IFOSFAMIDE
     Indication: OSTEOSARCOMA
     Dosage: 3 PRISES UNIQUES
     Route: 041
     Dates: start: 20171002, end: 20171005

REACTIONS (2)
  - Diarrhoea [Recovered/Resolved]
  - Febrile bone marrow aplasia [Recovered/Resolved]

NARRATIVE: CASE EVENT DATE: 2017
